FAERS Safety Report 19506490 (Version 1)
Quarter: 2021Q3

REPORT INFORMATION
  Report Type: Spontaneous
  Country: BR (occurrence: BR)
  Receive Date: 20210708
  Receipt Date: 20210708
  Transmission Date: 20211014
  Serious: Yes (Death, Other)
  Sender: FDA-Public Use
  Company Number: BR-PFIZER INC-2021783697

PATIENT
  Weight: 2.97 kg

DRUGS (1)
  1. ALPROSTADIL. [Suspect]
     Active Substance: ALPROSTADIL
     Indication: HEART DISEASE CONGENITAL
     Dosage: 0.05 UG/ KG/MIN
     Dates: start: 2019

REACTIONS (2)
  - Off label use [Unknown]
  - Periostitis [Fatal]

NARRATIVE: CASE EVENT DATE: 2019
